FAERS Safety Report 11149041 (Version 5)
Quarter: 2016Q2

REPORT INFORMATION
  Report Type: Spontaneous
  Country: US (occurrence: US)
  Receive Date: 20150529
  Receipt Date: 20160406
  Transmission Date: 20160815
  Serious: Yes (Death, Other)
  Sender: FDA-Public Use
  Company Number: US-PURDUE-USA-2015-0123735

PATIENT
  Age: 91 Year
  Sex: Female
  Weight: 175 kg

DRUGS (7)
  1. DIGOXIN. [Suspect]
     Active Substance: DIGOXIN
     Indication: PRODUCT USED FOR UNKNOWN INDICATION
     Route: 065
  2. MORPHINE SULFATE (SIMILAR TO NDA 19-516) [Suspect]
     Active Substance: MORPHINE SULFATE
     Indication: PRODUCT USED FOR UNKNOWN INDICATION
     Dosage: 5 MG, UNK
     Route: 065
  3. MORPHINE SULFATE (SIMILAR TO NDA 19-516) [Suspect]
     Active Substance: MORPHINE SULFATE
     Dosage: 2 MG, TID
     Route: 040
  4. OXYCODONE HCL IR CAPSULES [Concomitant]
     Active Substance: OXYCODONE HYDROCHLORIDE
     Indication: PRODUCT USED FOR UNKNOWN INDICATION
     Route: 048
  5. DILAUDID [Suspect]
     Active Substance: HYDROMORPHONE HYDROCHLORIDE
     Indication: PAIN
     Dosage: 2 MG, UNK TOTAL 2 INJECTIONS
     Route: 065
     Dates: start: 20150427, end: 20150430
  6. INSULIN [Concomitant]
     Active Substance: INSULIN NOS
     Indication: DIABETES MELLITUS
     Route: 065
  7. LASIX [Concomitant]
     Active Substance: FUROSEMIDE
     Indication: PRODUCT USED FOR UNKNOWN INDICATION
     Route: 065

REACTIONS (47)
  - Blood pressure decreased [Unknown]
  - Respiratory failure [Unknown]
  - Constipation [Recovered/Resolved]
  - Muscle spasms [Unknown]
  - Fluid imbalance [Unknown]
  - Death [Fatal]
  - Somnolence [Recovered/Resolved]
  - Abdominal pain [Unknown]
  - Insomnia [Unknown]
  - Quality of life decreased [Unknown]
  - Drug effect increased [Unknown]
  - Hip arthroplasty [Recovered/Resolved]
  - Hypophagia [Unknown]
  - Abdominal distension [Unknown]
  - Crying [Unknown]
  - Dyspnoea [Unknown]
  - Dysgeusia [Unknown]
  - Dysuria [Not Recovered/Not Resolved]
  - Dysarthria [Unknown]
  - Pruritus [Unknown]
  - Pain [Unknown]
  - Agitation [Unknown]
  - Chills [Unknown]
  - Haematochezia [Unknown]
  - Internal injury [Unknown]
  - Dehydration [Unknown]
  - Internal haemorrhage [Unknown]
  - Soliloquy [Recovered/Resolved]
  - Gaze palsy [Recovered/Resolved]
  - Disorientation [Unknown]
  - Hypoaesthesia [Unknown]
  - Communication disorder [Unknown]
  - Asthenia [Unknown]
  - Visual acuity reduced [Unknown]
  - Hypoacusis [Unknown]
  - Pain in extremity [Unknown]
  - Cardiac failure congestive [Unknown]
  - Hallucination [Recovered/Resolved]
  - Heart rate irregular [Unknown]
  - Dry mouth [Unknown]
  - Skin ulcer [Unknown]
  - Feeling cold [Unknown]
  - Dysphonia [Unknown]
  - Cardiac disorder [Unknown]
  - Mood altered [Unknown]
  - Confusional state [Unknown]
  - Unevaluable event [Unknown]

NARRATIVE: CASE EVENT DATE: 20150427
